FAERS Safety Report 8382459-0 (Version None)
Quarter: 2012Q2

REPORT INFORMATION
  Report Type: 
  Country: None (occurrence: None)
  Receive Date: 20120524
  Receipt Date: 20120521
  Transmission Date: 20120825
  Serious: Yes (Other)
  Sender: FDA-Public Use
  Company Number: PHHY2012AU043465

PATIENT
  Sex: Female

DRUGS (2)
  1. CLOZARIL [Suspect]
     Dosage: 187.5 MG, (EACH NIGHT)
     Dates: start: 20070101
  2. SEREPAX [Concomitant]
     Dosage: 30 MG, UNK

REACTIONS (3)
  - INTRACRANIAL HYPOTENSION [None]
  - HEADACHE [None]
  - PANIC ATTACK [None]
